FAERS Safety Report 11998293 (Version 3)
Quarter: 2016Q1

REPORT INFORMATION
  Report Type: Report from Study
  Country: US (occurrence: US)
  Receive Date: 20160203
  Receipt Date: 20160224
  Transmission Date: 20160526
  Serious: No
  Sender: FDA-Public Use
  Company Number: US-AMGEN-USASP2016011355

PATIENT
  Age: 62 Year
  Sex: Female

DRUGS (1)
  1. ENBREL [Suspect]
     Active Substance: ETANERCEPT
     Indication: ANKYLOSING SPONDYLITIS
     Dosage: UNK
     Route: 065
     Dates: start: 20160121

REACTIONS (7)
  - Injection site discolouration [Unknown]
  - Dizziness [Unknown]
  - Bronchitis [Unknown]
  - Injection site bruising [Unknown]
  - Tremor [Unknown]
  - Dyspnoea exertional [Unknown]
  - Fall [Unknown]

NARRATIVE: CASE EVENT DATE: 2016
